FAERS Safety Report 8811703 (Version 1)
Quarter: 2012Q4

REPORT INFORMATION
  Report Type: Spontaneous
  Country: DK (occurrence: None)
  Receive Date: 20120924
  Receipt Date: 20120924
  Transmission Date: 20130627
  Serious: Yes (Other)
  Sender: FDA-Public Use
  Company Number: 1363281

PATIENT
  Age: 87 Year
  Sex: Male

DRUGS (10)
  1. MEROPENEM [Suspect]
     Indication: PSEUDOMONAS INFECTION
     Route: 042
     Dates: start: 20120716
  2. CIPROFLOXACIN [Suspect]
     Indication: PSEUDOMONAS INFECTION
     Route: 048
     Dates: start: 20120717, end: 20120717
  3. VESICARE [Concomitant]
  4. MAREVAN [Concomitant]
  5. FURIX [Concomitant]
  6. KALEORID [Concomitant]
  7. SERETIDE [Concomitant]
  8. VENTOLINE [Concomitant]
  9. MAGNESIA [Concomitant]
  10. ZOPICLON [Concomitant]

REACTIONS (6)
  - International normalised ratio increased [None]
  - Drug eruption [None]
  - Oedema peripheral [None]
  - Purpura [None]
  - Blister [None]
  - Vasculitis [None]
